FAERS Safety Report 19900960 (Version 1)
Quarter: 2021Q3

REPORT INFORMATION
  Report Type: Spontaneous
  Country: FR (occurrence: FR)
  Receive Date: 20210930
  Receipt Date: 20210930
  Transmission Date: 20211014
  Serious: Yes (Death)
  Sender: FDA-Public Use
  Company Number: FR-TEVA-2021-FR-1958420

PATIENT
  Age: 77 Year
  Sex: Female
  Weight: 98.6 kg

DRUGS (4)
  1. IMBRUVICA [Suspect]
     Active Substance: IBRUTINIB
     Indication: MANTLE CELL LYMPHOMA RECURRENT
     Dosage: 280 MILLIGRAM DAILY;
     Route: 048
     Dates: start: 20210609
  2. RUXIENCE [RITUXIMAB] [Suspect]
     Active Substance: RITUXIMAB
     Indication: MANTLE CELL LYMPHOMA RECURRENT
     Dosage: 790 MG
     Dates: start: 20210831
  3. BISOPROLOL (FUMARATE DE) [Suspect]
     Active Substance: BISOPROLOL FUMARATE
     Indication: HYPERTENSION
     Dosage: 3.75 MG 2 X / D , UNIT DOSE : 1 DF
     Route: 048
     Dates: start: 20210831
  4. IRBESARTAN (CHLORHYDRATE D) [Suspect]
     Active Substance: IRBESARTAN
     Indication: HYPERTENSION
     Dosage: 150 MG / DAY , UNIT DOSE : 1 DF
     Route: 048
     Dates: start: 20210831

REACTIONS (1)
  - Sudden death [Fatal]

NARRATIVE: CASE EVENT DATE: 20210901
